FAERS Safety Report 13849672 (Version 2)
Quarter: 2017Q3

REPORT INFORMATION
  Report Type: Spontaneous
  Country: US (occurrence: US)
  Receive Date: 20170809
  Receipt Date: 20170811
  Transmission Date: 20171127
  Serious: Yes (Death)
  Sender: FDA-Public Use
  Company Number: PHEH2017US024934

PATIENT
  Age: 81 Year
  Sex: Male

DRUGS (2)
  1. ENTRESTO [Suspect]
     Active Substance: SACUBITRIL\VALSARTAN
     Dosage: 100 MG (49/51 MG), UNK
     Route: 065
     Dates: start: 20170731
  2. ENTRESTO [Suspect]
     Active Substance: SACUBITRIL\VALSARTAN
     Indication: PRODUCT USED FOR UNKNOWN INDICATION
     Dosage: 50 MG (24/26 MG), UNK
     Route: 065
     Dates: start: 20170703

REACTIONS (3)
  - Myocardial infarction [Fatal]
  - Loss of consciousness [Fatal]
  - Type 2 diabetes mellitus [Fatal]
